FAERS Safety Report 8247340-6 (Version None)
Quarter: 2012Q1

REPORT INFORMATION
  Report Type: 
  Country: None (occurrence: None)
  Receive Date: 20120330
  Receipt Date: 20120320
  Transmission Date: 20120608
  Serious: Yes (Other)
  Sender: FDA-Public Use
  Company Number: US-BAYER-2012-029820

PATIENT

DRUGS (3)
  1. XARELTO [Interacting]
     Indication: ORTHOPEDIC PROCEDURE
     Route: 048
  2. TORADOL [Concomitant]
  3. ASPIRIN [Suspect]

REACTIONS (2)
  - GASTROINTESTINAL HAEMORRHAGE [None]
  - WOUND SECRETION [None]
